FAERS Safety Report 26212386 (Version 1)
Quarter: 2025Q4

REPORT INFORMATION
  Report Type: Report from Study
  Country: BR (occurrence: None)
  Receive Date: 20251230
  Receipt Date: 20251230
  Transmission Date: 20260118
  Serious: Yes (Hospitalization)
  Sender: IONIS PHARMACEUTICALS
  Company Number: BR-IONIS PHARMACEUTICALS, INC.-2023IS002680

PATIENT
  Age: 35 Year
  Weight: 72 kg

DRUGS (8)
  1. TEGSEDI [Suspect]
     Active Substance: INOTERSEN SODIUM
     Indication: Hereditary neuropathic amyloidosis
     Dosage: 284 MG/1.5 ML, QW
  2. FUROSEMIDE [Concomitant]
     Active Substance: FUROSEMIDE
     Indication: Product used for unknown indication
     Dosage: 40 MILLIGRAM (SOMETIMES HE TAKES HALF A TABLET, OTHER TIMES ONE TABLET).
     Route: 065
  3. ENALAPRIL [Concomitant]
     Active Substance: ENALAPRIL
     Indication: Product used for unknown indication
     Dosage: 5 MILLIGRAM
     Route: 065
  4. ENALAPRIL [Concomitant]
     Active Substance: ENALAPRIL
     Dosage: 10 MILLIGRAM
     Route: 065
  5. VITAMINS [Concomitant]
     Active Substance: VITAMINS
     Indication: Product used for unknown indication
     Dosage: UNK
     Route: 065
  6. OSCAL D [Concomitant]
     Active Substance: CALCIUM CARBONATE\CHOLECALCIFEROL
     Indication: Product used for unknown indication
     Dosage: UNK
     Route: 065
  7. TOBRACORT [Concomitant]
     Indication: Product used for unknown indication
     Dosage: TOBRAMYCIN 3MG/G + DEXAMETHASONE 1MG/G EYE DROPS, 2 OR 3 DROPS
     Route: 065
  8. DOSS [Concomitant]
     Active Substance: DOCUSATE SODIUM
     Indication: Product used for unknown indication
     Dosage: 50000, 1 TABLET QW
     Route: 065

REACTIONS (16)
  - Oedema peripheral [Recovering/Resolving]
  - Wound infection [Recovering/Resolving]
  - Generalised oedema [Recovered/Resolved]
  - Disease progression [Recovered/Resolved with Sequelae]
  - Sensory loss [Unknown]
  - Gait disturbance [Unknown]
  - Dysstasia [Unknown]
  - Mobility decreased [Unknown]
  - Decubitus ulcer [Recovering/Resolving]
  - Prescription drug used without a prescription [Not Recovered/Not Resolved]
  - Weight increased [Unknown]
  - Chest pain [Unknown]
  - Back pain [Unknown]
  - Oropharyngeal pain [Unknown]
  - Urinary incontinence [Unknown]
  - Sleep disorder [Unknown]
